FAERS Safety Report 21510891 (Version 1)
Quarter: 2022Q4

REPORT INFORMATION
  Report Type: Spontaneous
  Country: CA (occurrence: CA)
  Receive Date: 20221026
  Receipt Date: 20221026
  Transmission Date: 20230112
  Serious: Yes (Life-Threatening, Other)
  Sender: FDA-Public Use
  Company Number: CA-SA-2022SA436574

PATIENT
  Age: 66 Year
  Sex: Male
  Weight: 93 kg

DRUGS (22)
  1. LOVENOX [Suspect]
     Active Substance: ENOXAPARIN SODIUM
     Indication: Deep vein thrombosis
     Dosage: 100 MG, Q12H
     Route: 058
     Dates: start: 20211026, end: 20211108
  2. PANTOPRAZOLE [Concomitant]
     Active Substance: PANTOPRAZOLE
  3. ASPIRIN [Concomitant]
     Active Substance: ASPIRIN
  4. ACETAMINOPHEN [Concomitant]
     Active Substance: ACETAMINOPHEN
     Dosage: UNK
  5. ONDANSETRON [Concomitant]
     Active Substance: ONDANSETRON
     Dosage: UNK
  6. ATORVASTATIN [Concomitant]
     Active Substance: ATORVASTATIN
     Dosage: UNK
  7. FERROUS SULFATE [Concomitant]
     Active Substance: FERROUS SULFATE
     Dosage: UNK
  8. METHADONE [Concomitant]
     Active Substance: METHADONE HYDROCHLORIDE
  9. POLYETHYLENE GLYCOL [MACROGOL 3350] [Concomitant]
  10. NICOTINE [Concomitant]
     Active Substance: NICOTINE
  11. ALUMINIUM;MAGNESIUM [Concomitant]
  12. EZETIMIBE [Concomitant]
     Active Substance: EZETIMIBE
  13. OLANZAPINE [Concomitant]
     Active Substance: OLANZAPINE
  14. CYANOCOBALAMIN [Concomitant]
     Active Substance: CYANOCOBALAMIN
  15. ATROPINE [Concomitant]
     Active Substance: ATROPINE
  16. GLYCERIN [Concomitant]
     Active Substance: GLYCERIN
  17. POTASSIUM CHLORIDE [Concomitant]
     Active Substance: POTASSIUM CHLORIDE
  18. LORAZEPAM [Concomitant]
     Active Substance: LORAZEPAM
  19. DIMENHYDRINATE [Concomitant]
     Active Substance: DIMENHYDRINATE
  20. SITAGLIPTIN [Concomitant]
     Active Substance: SITAGLIPTIN
  21. METFORMIN [Concomitant]
     Active Substance: METFORMIN HYDROCHLORIDE
  22. SENNOSIDES [Concomitant]
     Active Substance: SENNOSIDES

REACTIONS (5)
  - Compartment syndrome [Recovered/Resolved]
  - Hypotension [Recovered/Resolved]
  - Hypovolaemia [Recovered/Resolved]
  - Haemoglobin decreased [Recovered/Resolved]
  - Haemorrhage [Recovered/Resolved]

NARRATIVE: CASE EVENT DATE: 20211107
